FAERS Safety Report 10431048 (Version 1)
Quarter: 2014Q3

REPORT INFORMATION
  Report Type: Spontaneous
  Country: PT (occurrence: PT)
  Receive Date: 20140904
  Receipt Date: 20140904
  Transmission Date: 20150326
  Serious: Yes (Hospitalization, Other)
  Sender: FDA-Public Use
  Company Number: PT-ACTAVIS-2014-19032

PATIENT
  Age: 55 Year
  Sex: Male

DRUGS (4)
  1. PHYSIOLOGICAL SALINE SOLUTION [Concomitant]
     Active Substance: SODIUM CHLORIDE
     Indication: SHOULDER OPERATION
     Dosage: UNK
     Route: 014
  2. BETAMETHASONE (UNKNOWN) [Suspect]
     Active Substance: BETAMETHASONE
     Indication: SHOULDER OPERATION
     Dosage: 14 MG, SINGLE (14 MG/2ML)
     Route: 014
  3. METFORMIN [Concomitant]
     Active Substance: METFORMIN HYDROCHLORIDE
     Indication: TYPE 2 DIABETES MELLITUS
     Dosage: UNK
     Route: 065
  4. XYLOCAINE [Concomitant]
     Active Substance: LIDOCAINE HYDROCHLORIDE
     Indication: SHOULDER OPERATION
     Dosage: UNK
     Route: 014

REACTIONS (1)
  - Necrotising fasciitis staphylococcal [Recovered/Resolved with Sequelae]
